FAERS Safety Report 6756907-3 (Version None)
Quarter: 2010Q2

REPORT INFORMATION
  Report Type: 
  Country: None (occurrence: None)
  Receive Date: 20100604
  Receipt Date: 20100524
  Transmission Date: 20101027
  Serious: Yes (Other)
  Sender: FDA-Public Use
  Company Number: JP-PFIZER INC-2010028012

PATIENT
  Age: 76 Year
  Sex: Male
  Weight: 54 kg

DRUGS (4)
  1. GABAPEN [Suspect]
     Dosage: 300MG PER DAY
     Route: 048
     Dates: start: 20080404, end: 20080411
  2. GABAPEN [Suspect]
     Dosage: 600MG PER DAY
     Route: 048
     Dates: start: 20080411, end: 20080425
  3. ALLELOCK [Concomitant]
     Dosage: UNK
     Dates: start: 20060701
  4. CINAL [Concomitant]
     Dosage: UNK
     Dates: start: 20060701

REACTIONS (1)
  - PORIOMANIA [None]
